FAERS Safety Report 9647109 (Version 1)
Quarter: 2013Q4

REPORT INFORMATION
  Report Type: Spontaneous
  Country: US (occurrence: None)
  Receive Date: 20131024
  Receipt Date: 20131024
  Transmission Date: 20140711
  Serious: Yes (Life-Threatening, Hospitalization)
  Sender: FDA-Public Use
  Company Number: None

PATIENT
  Age: 89 Year
  Sex: Male
  Weight: 79.38 kg

DRUGS (2)
  1. XARELTO [Suspect]
     Indication: CEREBROVASCULAR ACCIDENT
     Dates: start: 20130414, end: 20130418
  2. XARELTO [Suspect]
     Indication: PROPHYLAXIS
     Dates: start: 20130414, end: 20130418

REACTIONS (2)
  - Haemorrhage [None]
  - General physical health deterioration [None]
